FAERS Safety Report 12318400 (Version 2)
Quarter: 2016Q2

REPORT INFORMATION
  Report Type: Spontaneous
  Country: US (occurrence: US)
  Receive Date: 20160429
  Receipt Date: 20160523
  Transmission Date: 20160815
  Serious: No
  Sender: FDA-Public Use
  Company Number: US-PFIZER INC-2016194366

PATIENT
  Age: 65 Year
  Sex: Male
  Weight: 100 kg

DRUGS (8)
  1. SIROLIMUS. [Suspect]
     Active Substance: SIROLIMUS
     Indication: PROPHYLAXIS AGAINST TRANSPLANT REJECTION
     Dosage: 1 MG, 1X/DAY
     Dates: start: 2009
  2. GLIMEPIRIDE. [Concomitant]
     Active Substance: GLIMEPIRIDE
     Dosage: UNK
     Dates: start: 2007
  3. LISINOPRIL. [Concomitant]
     Active Substance: LISINOPRIL
     Dosage: 10 MG, UNK
     Dates: start: 2007
  4. FLAXSEED [Concomitant]
     Active Substance: FLAX SEED
     Dosage: 1000 MG, UNK
     Dates: start: 201601
  5. FUROSEMIDE. [Concomitant]
     Active Substance: FUROSEMIDE
     Dosage: 20 MG, UNK
     Dates: start: 2007
  6. FISH OIL [Concomitant]
     Active Substance: FISH OIL
     Dosage: 300 MG, UNK
     Dates: start: 201601
  7. PANTOPRAZOLE [Concomitant]
     Active Substance: PANTOPRAZOLE SODIUM
     Dosage: UNK
     Dates: start: 2007
  8. SIROLIMUS. [Suspect]
     Active Substance: SIROLIMUS
     Dosage: 1 MG, 1X/DAY
     Dates: start: 201603

REACTIONS (2)
  - Malaise [Recovered/Resolved]
  - Drug dose omission [Recovered/Resolved]
